FAERS Safety Report 5601621-0 (Version None)
Quarter: 2008Q1

REPORT INFORMATION
  Report Type: 
  Country: None (occurrence: None)
  Receive Date: 20080124
  Receipt Date: 20070130
  Transmission Date: 20080703
  Serious: No
  Sender: FDA-Public Use
  Company Number: US-BRISTOL-MYERS SQUIBB COMPANY-13663323

PATIENT
  Age: 57 Year
  Sex: Male

DRUGS (1)
  1. AZTREONAM [Suspect]
     Indication: INFECTION
     Dates: start: 20070104

REACTIONS (1)
  - DIPLOPIA [None]
